FAERS Safety Report 24304982 (Version 13)
Quarter: 2025Q3

REPORT INFORMATION
  Report Type: Spontaneous
  Country: SA (occurrence: SA)
  Receive Date: 20240911
  Receipt Date: 20250912
  Transmission Date: 20251021
  Serious: Yes (Hospitalization, Other)
  Sender: NOVARTIS
  Company Number: SA-002147023-NVSC2024SA175648

PATIENT
  Age: 0 Year
  Sex: Female
  Weight: 5.1 kg

DRUGS (5)
  1. ZOLGENSMA [Suspect]
     Active Substance: ONASEMNOGENE ABEPARVOVEC-XIOI
     Indication: Spinal muscular atrophy
     Route: 042
     Dates: start: 20240827, end: 20240827
  2. Predo [Concomitant]
     Indication: Prophylaxis
     Route: 042
     Dates: start: 20240826
  3. Predo [Concomitant]
     Route: 042
     Dates: start: 20240828
  4. Predo [Concomitant]
     Route: 042
     Dates: start: 20240909
  5. Predo [Concomitant]
     Route: 042
     Dates: end: 20241101

REACTIONS (19)
  - Pyrexia [Recovered/Resolved]
  - Oropharyngeal pain [Recovered/Resolved]
  - Toothache [Recovered/Resolved]
  - Choking [Recovered/Resolved]
  - Platelet count abnormal [Recovered/Resolved]
  - Aspartate aminotransferase abnormal [Recovered/Resolved]
  - Alanine aminotransferase abnormal [Recovered/Resolved]
  - Laboratory test abnormal [Recovered/Resolved]
  - Immunisation reaction [Recovered/Resolved]
  - Diarrhoea [Recovered/Resolved]
  - Abdominal pain [Recovered/Resolved]
  - Ocular hyperaemia [Recovered/Resolved]
  - Laboratory test abnormal [Unknown]
  - Aspartate aminotransferase increased [Recovered/Resolved]
  - Pyrexia [Recovered/Resolved]
  - Pyrexia [Recovered/Resolved]
  - Pyrexia [Unknown]
  - Cough [Not Recovered/Not Resolved]
  - Influenza [Not Recovered/Not Resolved]

NARRATIVE: CASE EVENT DATE: 20240828
